FAERS Safety Report 23580415 (Version 1)
Quarter: 2024Q1

REPORT INFORMATION
  Report Type: Spontaneous
  Country: IN (occurrence: IN)
  Receive Date: 20240229
  Receipt Date: 20240229
  Transmission Date: 20240410
  Serious: Yes (Other)
  Sender: FDA-Public Use
  Company Number: IN-RDY-LIT/IND/24/0003200

PATIENT
  Age: 4 Decade
  Sex: Female

DRUGS (8)
  1. GLIMEPIRIDE [Suspect]
     Active Substance: GLIMEPIRIDE
     Indication: Type 2 diabetes mellitus
     Route: 048
  2. METFORMIN [Suspect]
     Active Substance: METFORMIN HYDROCHLORIDE
     Indication: Type 2 diabetes mellitus
  3. GLICLAZIDE [Suspect]
     Active Substance: GLICLAZIDE
     Indication: Type 2 diabetes mellitus
  4. VOGLIBOSE [Suspect]
     Active Substance: VOGLIBOSE
     Indication: Type 2 diabetes mellitus
  5. CLOMIPHENE CITRATE [Suspect]
     Active Substance: CLOMIPHENE CITRATE
     Indication: Polycystic ovarian syndrome
     Route: 048
  6. VITAMIN D NOS [Concomitant]
     Active Substance: VITAMIN D NOS
     Indication: Polycystic ovarian syndrome
  7. CALCIUM [Concomitant]
     Active Substance: CALCIUM
     Indication: Polycystic ovarian syndrome
  8. caffeine, ergotamine, paracetamol, prochlorperazine [Concomitant]
     Dosage: COMBINATION OF CAFFEINE 100 MG, ERGOTAMINE 1 MG, PARACETAMOL 250 MG, AND PROCHLORPERAZINE 2.5 MG (SO

REACTIONS (3)
  - Erythema multiforme [Recovering/Resolving]
  - Drug ineffective [Unknown]
  - Condition aggravated [Recovering/Resolving]
